FAERS Safety Report 23084073 (Version 1)
Quarter: 2023Q4

REPORT INFORMATION
  Report Type: Spontaneous
  Country: US (occurrence: US)
  Receive Date: 20231019
  Receipt Date: 20231019
  Transmission Date: 20240109
  Serious: No
  Sender: FDA-Public Use
  Company Number: US-PFIZER INC-202300332607

PATIENT
  Age: 26 Year
  Sex: Male

DRUGS (5)
  1. EUCRISA [Suspect]
     Active Substance: CRISABOROLE
     Indication: Dermatitis atopic
     Dosage: UNK
  2. TRIAMCINOLONE [Suspect]
     Active Substance: TRIAMCINOLONE
     Indication: Dermatitis atopic
     Dosage: UNK
  3. CLOBETASOL [Suspect]
     Active Substance: CLOBETASOL
     Indication: Dermatitis atopic
     Dosage: UNK
  4. DESONIDE [Suspect]
     Active Substance: DESONIDE
     Indication: Dermatitis atopic
     Dosage: UNK
  5. BETAMETHASONE [Suspect]
     Active Substance: BETAMETHASONE
     Indication: Dermatitis atopic
     Dosage: UNK

REACTIONS (1)
  - Treatment failure [Unknown]
